FAERS Safety Report 5452372-7 (Version None)
Quarter: 2007Q3

REPORT INFORMATION
  Report Type: 
  Country: None (occurrence: None)
  Receive Date: 20070802
  Receipt Date: 20070531
  Transmission Date: 20080115
  Serious: Yes (Hospitalization)
  Sender: FDA-Public Use
  Company Number: 500207

PATIENT
  Age: 69 Year
  Sex: Female

DRUGS (14)
  1. BONIVA [Suspect]
     Indication: OSTEOPOROSIS
     Dosage: 3 MG INTRAVENOUS
     Route: 042
     Dates: start: 20070331
  2. FLOVENT [Concomitant]
  3. CARTIA (*ASPIRIN/*DILTIAZEM) [Concomitant]
  4. LORAZEPAM [Concomitant]
  5. VEGIFEM (ESTRADIOL) [Concomitant]
  6. DETROL LA [Concomitant]
  7. MULTIVITAMIN NOS (MULTIVITAMIN NOS) [Concomitant]
  8. VITAMIN E (ALPHA-TOCOPHEROL) [Concomitant]
  9. CALCIUM (CALCIUM) [Concomitant]
  10. FLAXSEED (LINUM USITATISSIMUM) [Concomitant]
  11. ACETAMINOPHEN [Concomitant]
  12. THERA TEARS (CARBOXYMETHYLCELLULOSE SODIUM) [Concomitant]
  13. PREVACID [Concomitant]
  14. ESTRADIOL [Concomitant]

REACTIONS (9)
  - ABDOMINAL PAIN UPPER [None]
  - ANOREXIA [None]
  - BACK PAIN [None]
  - FEELING HOT [None]
  - LOSS OF CONSCIOUSNESS [None]
  - NAUSEA [None]
  - PAIN [None]
  - PRESYNCOPE [None]
  - VOMITING [None]
